FAERS Safety Report 15690100 (Version 1)
Quarter: 2018Q4

REPORT INFORMATION
  Report Type: Spontaneous
  Country: CN (occurrence: CN)
  Receive Date: 20181205
  Receipt Date: 20181205
  Transmission Date: 20190205
  Serious: Yes (Other)
  Sender: FDA-Public Use
  Company Number: CN-PFIZER INC-2018493457

PATIENT
  Age: 81 Year
  Sex: Male

DRUGS (2)
  1. CARDURA XL [Suspect]
     Active Substance: DOXAZOSIN MESYLATE
     Indication: BENIGN PROSTATIC HYPERPLASIA
     Dosage: 4 MG, 1X/DAY (QN)
     Route: 048
     Dates: start: 20181002, end: 20181011
  2. CARDURA XL [Suspect]
     Active Substance: DOXAZOSIN MESYLATE
     Indication: URINARY TRACT INFECTION

REACTIONS (3)
  - Blood pressure decreased [Recovering/Resolving]
  - Pruritus [Recovering/Resolving]
  - Dizziness [Recovering/Resolving]

NARRATIVE: CASE EVENT DATE: 20181011
